FAERS Safety Report 5159102-7 (Version None)
Quarter: 2006Q4

REPORT INFORMATION
  Report Type: 
  Country: None (occurrence: None)
  Receive Date: 20061128
  Receipt Date: 20060327
  Transmission Date: 20070319
  Serious: No
  Sender: FDA-Public Use
  Company Number: JP-BOEHRINGER INGELHEIM PHARMACEUTICALS, INC.-2006-BP-03440NB

PATIENT
  Sex: Male
  Weight: 64 kg

DRUGS (3)
  1. BI-SIFROL TABLETS [Suspect]
     Indication: PARKINSON'S DISEASE
     Route: 048
     Dates: start: 20060316, end: 20060319
  2. SYMMETREL [Suspect]
     Indication: PARKINSON'S DISEASE
     Route: 048
     Dates: end: 20060321
  3. NEODOPASOL [Suspect]
     Indication: PARKINSON'S DISEASE
     Route: 048
     Dates: start: 20060316, end: 20060321

REACTIONS (5)
  - CONDITION AGGRAVATED [None]
  - DISORIENTATION [None]
  - HALLUCINATION, VISUAL [None]
  - PARKINSON'S DISEASE [None]
  - SUDDEN ONSET OF SLEEP [None]
